FAERS Safety Report 16498047 (Version 1)
Quarter: 2019Q2

REPORT INFORMATION
  Report Type: Spontaneous
  Country: US (occurrence: US)
  Receive Date: 20190628
  Receipt Date: 20190628
  Transmission Date: 20190711
  Serious: Yes (Life-Threatening, Hospitalization, Congenital Anomaly, Other)
  Sender: FDA-Public Use
  Company Number: US-MYLANLABS-2019M1059710

PATIENT
  Sex: Female

DRUGS (2)
  1. AMIODARONE [Suspect]
     Active Substance: AMIODARONE
     Indication: CARDIAC ARREST
     Route: 064
  2. AMIODARONE [Suspect]
     Active Substance: AMIODARONE
     Indication: VENTRICULAR FIBRILLATION

REACTIONS (4)
  - Foetal exposure during pregnancy [Recovered/Resolved]
  - Congenital hypothyroidism [Recovering/Resolving]
  - Goitre congenital [Recovering/Resolving]
  - Infantile apnoea [Recovering/Resolving]
